FAERS Safety Report 24651389 (Version 1)
Quarter: 2024Q4

REPORT INFORMATION
  Report Type: Spontaneous
  Country: US (occurrence: US)
  Receive Date: 20241122
  Receipt Date: 20241122
  Transmission Date: 20250115
  Serious: Yes (Other)
  Sender: TAKEDA
  Company Number: US-TAKEDA-2024TUS115361

PATIENT
  Age: 53 Year
  Sex: Female
  Weight: 72 kg

DRUGS (1)
  1. ENTYVIO [Suspect]
     Active Substance: VEDOLIZUMAB
     Indication: Proctitis
     Dosage: UNK

REACTIONS (2)
  - Bell^s palsy [Unknown]
  - Off label use [Unknown]

NARRATIVE: CASE EVENT DATE: 20241027
